FAERS Safety Report 9177572 (Version 1)
Quarter: 2013Q1

REPORT INFORMATION
  Report Type: Spontaneous
  Country: RO (occurrence: RO)
  Receive Date: 20130321
  Receipt Date: 20130321
  Transmission Date: 20140127
  Serious: Yes (Death, Hospitalization, Other)
  Sender: FDA-Public Use
  Company Number: RO-BAYER-2013-035551

PATIENT
  Sex: Male

DRUGS (6)
  1. ACETYLSALICYLIC ACID({=100 MG) [Suspect]
  2. COUMADIN [Concomitant]
     Indication: ANTICOAGULANT THERAPY
  3. BETA BLOCKING AGENTS [Concomitant]
  4. THIAZIDES [Concomitant]
  5. ANGIOTENSIN II ANTAGONISTS [Concomitant]
  6. HMG COA REDUCTASE INHIBITORS [Concomitant]

REACTIONS (7)
  - Sepsis [Fatal]
  - Cardiovascular disorder [Fatal]
  - Intestinal ischaemia [None]
  - Colitis ischaemic [None]
  - Intestinal infarction [None]
  - Coronary artery stenosis [None]
  - Inappropriate schedule of drug administration [None]
